FAERS Safety Report 11255706 (Version 6)
Quarter: 2015Q3

REPORT INFORMATION
  Report Type: Report from Study
  Country: US (occurrence: US)
  Receive Date: 20150709
  Receipt Date: 20150819
  Transmission Date: 20151125
  Serious: Yes (Hospitalization, Other)
  Sender: FDA-Public Use
  Company Number: US-PFIZER INC-MER2015176789

PATIENT
  Age: 76 Year
  Sex: Male
  Weight: 79 kg

DRUGS (34)
  1. OXYCODONE [Concomitant]
     Active Substance: OXYCODONE
     Indication: PAIN
     Dosage: 10-20 MG
     Route: 048
     Dates: start: 201410
  2. MUCOMYST /00082801/ [Concomitant]
     Indication: PAIN
     Dosage: 2.5 G, 1X/DAY
     Route: 048
     Dates: start: 201502
  3. FENTANYL. [Concomitant]
     Active Substance: FENTANYL
     Indication: BACK PAIN
     Dosage: 50 MCG/HR, ONCE IN 72 HOUR
     Route: 061
     Dates: start: 20150701
  4. SODIUM PHOSPHATE [Concomitant]
     Active Substance: SODIUM PHOSPHATE
     Indication: CONSTIPATION
     Dosage: 1 BOTTLE
     Route: 048
     Dates: start: 20150416
  5. ALOE VERA [Concomitant]
     Active Substance: ALOE VERA LEAF
     Indication: SUPPLEMENTATION THERAPY
     Dosage: 15 ML, 1X/DAY
     Route: 048
     Dates: start: 201501
  6. PRILOSEC [Concomitant]
     Active Substance: OMEPRAZOLE MAGNESIUM
     Indication: DYSPEPSIA
     Dosage: 20 MG, 1X/DAY
     Route: 048
     Dates: start: 20150701
  7. LORAZEPAM. [Concomitant]
     Active Substance: LORAZEPAM
     Indication: NAUSEA
     Route: 048
     Dates: start: 20150519
  8. NEXIUM [Concomitant]
     Active Substance: ESOMEPRAZOLE MAGNESIUM
     Indication: ABDOMINAL PAIN
     Dosage: 40 MG, 1X/DAY
     Route: 048
     Dates: start: 201503
  9. PROMETHAZINE [Concomitant]
     Active Substance: PROMETHAZINE\PROMETHAZINE HYDROCHLORIDE
     Indication: VOMITING
  10. IBUPROFEN. [Concomitant]
     Active Substance: IBUPROFEN
     Indication: PYREXIA
     Dosage: 600 MG, EVERY 8 HOURS AS NEEDED
     Route: 048
     Dates: start: 20150421, end: 20150424
  11. SENNA [Concomitant]
     Active Substance: SENNA LEAF\SENNOSIDES\SENNOSIDES A AND B
     Indication: CONSTIPATION
     Dosage: 17.2 MG, 1X/DAY
     Route: 048
     Dates: start: 20150415
  12. MIRALAX [Concomitant]
     Active Substance: POLYETHYLENE GLYCOL 3350
     Dosage: UNK, 1X/DAY
     Route: 048
     Dates: start: 20150423
  13. PROMETHAZINE [Concomitant]
     Active Substance: PROMETHAZINE\PROMETHAZINE HYDROCHLORIDE
     Indication: NAUSEA
     Dosage: 12.5-25 MG, EVERY 4 HRS
     Route: 048
     Dates: start: 20150421
  14. PANTOPRAZOLE [Concomitant]
     Active Substance: PANTOPRAZOLE SODIUM
     Indication: GASTROOESOPHAGEAL REFLUX DISEASE
     Dosage: 80 MG, 1X/DAY
     Route: 042
     Dates: start: 20150505
  15. OXYCODONE [Concomitant]
     Active Substance: OXYCODONE
     Indication: BACK PAIN
     Dosage: 17.5 MG, UNK
     Route: 048
     Dates: start: 201501, end: 20150423
  16. MIRALAX [Concomitant]
     Active Substance: POLYETHYLENE GLYCOL 3350
     Indication: CONSTIPATION
     Dosage: 1 CUP
     Route: 048
     Dates: start: 20150416
  17. DILAUDID [Concomitant]
     Active Substance: HYDROMORPHONE HYDROCHLORIDE
     Indication: PAIN
     Dosage: 1 MG, UNK
     Route: 042
     Dates: start: 20150423, end: 20150424
  18. POLYETHYLENE GLYCOL [Concomitant]
     Active Substance: POLYETHYLENE GLYCOLS
     Indication: CONSTIPATION
     Dosage: 1 PACKET, 1X/DAY
     Route: 048
     Dates: start: 20150416
  19. COLACE [Concomitant]
     Active Substance: DOCUSATE SODIUM
     Indication: FAECES HARD
  20. OXYCODONE [Concomitant]
     Active Substance: OXYCODONE
     Dosage: 15-20 MG
     Route: 048
     Dates: start: 20150423
  21. LIPITOR [Concomitant]
     Active Substance: ATORVASTATIN CALCIUM
     Indication: HYPERLIPIDAEMIA
     Dosage: 20 MG, 1X/DAY
     Route: 048
  22. FENTANYL. [Concomitant]
     Active Substance: FENTANYL
     Indication: PAIN
     Dosage: 50 MCG/HR, ONCE IN 72 HOUR
     Route: 061
     Dates: start: 20150423
  23. PRILOSEC [Concomitant]
     Active Substance: OMEPRAZOLE MAGNESIUM
     Indication: OESOPHAGOGASTRODUODENOSCOPY
     Dosage: 40 MG, 2X/DAY
     Route: 048
     Dates: start: 20150505
  24. AMBIEN [Concomitant]
     Active Substance: ZOLPIDEM TARTRATE
     Indication: INSOMNIA
     Dosage: 5 MG, UNK
     Route: 048
  25. AMBIEN [Concomitant]
     Active Substance: ZOLPIDEM TARTRATE
     Dosage: 5 MG, 1X/DAY
     Route: 048
     Dates: start: 20150506
  26. MSB0010718C [Suspect]
     Active Substance: AVELUMAB
     Indication: NEUROENDOCRINE CARCINOMA OF THE SKIN
     Dosage: 666 MG, ONCE EVERY TWO WEEKS
     Route: 042
     Dates: start: 20150421, end: 20150421
  27. PANTOPRAZOLE [Concomitant]
     Active Substance: PANTOPRAZOLE SODIUM
     Indication: NEUROENDOCRINE CARCINOMA OF THE SKIN
     Dosage: 80 MG, EVERY 8 HRS
     Route: 042
     Dates: start: 20150505, end: 20150505
  28. IBUPROFEN. [Concomitant]
     Active Substance: IBUPROFEN
     Indication: CHILLS
  29. PROMETHAZINE [Concomitant]
     Active Substance: PROMETHAZINE\PROMETHAZINE HYDROCHLORIDE
     Indication: DIZZINESS
  30. TARGIN [Concomitant]
     Active Substance: NALOXONE HYDROCHLORIDE\OXYCODONE HYDROCHLORIDE
     Indication: PAIN
     Dosage: 40 MG, 2X/DAY
     Route: 048
     Dates: start: 201501, end: 20150423
  31. MSB0010718C [Suspect]
     Active Substance: AVELUMAB
     Dosage: 743 MG, ONCE EVERY TWO WEEKS
     Route: 042
     Dates: start: 20150506, end: 20150701
  32. IBUPROFEN. [Concomitant]
     Active Substance: IBUPROFEN
     Indication: ANALGESIC THERAPY
  33. COLACE [Concomitant]
     Active Substance: DOCUSATE SODIUM
     Indication: CONSTIPATION
     Dosage: 200 MG, 1X/DAY
     Route: 048
     Dates: start: 20150415
  34. PRILOSEC [Concomitant]
     Active Substance: OMEPRAZOLE MAGNESIUM
     Indication: GASTROINTESTINAL DISORDER
     Dosage: 20 MG, 2X/DAY
     Route: 048
     Dates: start: 20150506

REACTIONS (1)
  - Ascites [Not Recovered/Not Resolved]

NARRATIVE: CASE EVENT DATE: 20150707
